FAERS Safety Report 10264561 (Version 1)
Quarter: 2014Q2

REPORT INFORMATION
  Report Type: Spontaneous
  Country: US (occurrence: None)
  Receive Date: 20140624
  Receipt Date: 20140624
  Transmission Date: 20141212
  Serious: Yes (Other)
  Sender: FDA-Public Use
  Company Number: 001756748A

PATIENT
  Age: 13 Year
  Sex: Male

DRUGS (2)
  1. PROACTIV SOLUTION RENEWING CLEANSER [Suspect]
     Indication: ACNE
     Dosage: TWICE DAILY DERMAL
     Dates: start: 20140507
  2. PROACTIV SOLUTION REPAIRING TREATMENT [Suspect]
     Indication: ACNE
     Dosage: TWICE DAILY DERMAL
     Dates: start: 20140507

REACTIONS (6)
  - Swelling face [None]
  - Dyspnoea [None]
  - Eye swelling [None]
  - Pharyngeal oedema [None]
  - Rash [None]
  - Pruritus [None]
